FAERS Safety Report 6007327-0 (Version None)
Quarter: 2008Q4

REPORT INFORMATION
  Report Type: 
  Country: None (occurrence: None)
  Receive Date: 20081217
  Receipt Date: 20080307
  Transmission Date: 20090506
  Serious: No
  Sender: FDA-Public Use
  Company Number: US-ASTRAZENECA-2008UW04841

PATIENT
  Age: 55 Year
  Sex: Female
  Weight: 79.4 kg

DRUGS (5)
  1. CRESTOR [Suspect]
     Indication: BLOOD CHOLESTEROL INCREASED
     Route: 048
  2. CRESTOR [Suspect]
     Route: 048
  3. EFFEXOR [Concomitant]
  4. PREVACID [Concomitant]
  5. BLOOD PRESSURE MEDICATION [Concomitant]

REACTIONS (2)
  - PAIN [None]
  - TOOTHACHE [None]
